FAERS Safety Report 7481743-2 (Version None)
Quarter: 2011Q2

REPORT INFORMATION
  Report Type: 
  Country: None (occurrence: None)
  Receive Date: 20110516
  Receipt Date: 20110510
  Transmission Date: 20111010
  Serious: Yes (Death)
  Sender: FDA-Public Use
  Company Number: B0597384A

PATIENT
  Sex: Female

DRUGS (18)
  1. BISOPROLOL FUMARATE [Concomitant]
     Dosage: 5MG PER DAY
     Route: 065
     Dates: start: 20071211
  2. SINEMET [Concomitant]
     Dosage: 250MCG PER DAY
     Route: 048
     Dates: start: 20020430
  3. ROPINIROLE [Suspect]
     Indication: PARKINSON'S DISEASE
     Dosage: 3MG PER DAY
  4. SINEMET CR [Concomitant]
     Route: 048
     Dates: start: 20020719
  5. AMOXIDAL [Concomitant]
     Indication: PARKINSON'S DISEASE
     Dosage: 250MG THREE TIMES PER DAY
  6. FORTISIP [Concomitant]
     Route: 048
     Dates: start: 20070918
  7. FERROUS SULFATE TAB [Concomitant]
     Route: 048
     Dates: start: 20060927
  8. ROPINIROLE HYDROCHLORIDE [Suspect]
     Indication: PARKINSON'S DISEASE
     Dosage: 9MG PER DAY
     Route: 048
     Dates: start: 20070918
  9. LEVODOPA [Concomitant]
     Indication: PARKINSON'S DISEASE
     Route: 065
  10. DIGOXIN [Concomitant]
     Dosage: 62.5MCG PER DAY
     Route: 048
     Dates: start: 20070918
  11. FUROSEMIDE [Concomitant]
     Dosage: 20MG PER DAY
     Route: 048
  12. CARBIMAZOLE [Concomitant]
     Dosage: 5MG PER DAY
     Route: 048
     Dates: start: 20060630
  13. ASPIRIN [Concomitant]
     Dosage: 75MG PER DAY
     Route: 048
     Dates: start: 20070918
  14. SPARTEINE SULPHATE [Concomitant]
     Route: 048
  15. SINEMET [Concomitant]
     Dates: start: 20011022
  16. RISPERDAL [Suspect]
     Indication: PARKINSON'S DISEASE
     Dosage: 9MG PER DAY
     Route: 065
  17. LACTULOSE [Concomitant]
     Dosage: 10ML TWICE PER DAY
     Route: 048
     Dates: start: 20070918
  18. CARBIDOPA [Concomitant]
     Indication: PARKINSON'S DISEASE
     Route: 065

REACTIONS (4)
  - WRONG DRUG ADMINISTERED [None]
  - DEATH [None]
  - OFF LABEL USE [None]
  - MEDICATION ERROR [None]
